FAERS Safety Report 12969791 (Version 2)
Quarter: 2017Q1

REPORT INFORMATION
  Report Type: Spontaneous
  Country: IT (occurrence: IT)
  Receive Date: 20161123
  Receipt Date: 20170113
  Transmission Date: 20170428
  Serious: Yes (Other)
  Sender: FDA-Public Use
  Company Number: IT-TEVA-713819ACC

PATIENT
  Age: 69 Year
  Sex: Male

DRUGS (5)
  1. ALIMTA [Suspect]
     Active Substance: PEMETREXED DISODIUM
     Indication: LUNG ADENOCARCINOMA METASTATIC
     Route: 042
     Dates: start: 20160810, end: 20161114
  2. KEPPRA [Concomitant]
     Active Substance: LEVETIRACETAM
     Indication: PRODUCT USED FOR UNKNOWN INDICATION
     Dosage: 2000 MILLIGRAM DAILY;
     Route: 048
  3. CISPLATINO TEVA ITALIA - 1MG/ML [Suspect]
     Active Substance: CISPLATIN
     Indication: LUNG ADENOCARCINOMA METASTATIC
     Route: 042
     Dates: start: 20160810, end: 20160907
  4. OMEPRAZOLE. [Concomitant]
     Active Substance: OMEPRAZOLE
     Dosage: 20 MILLIGRAM DAILY;
  5. SOLDESAM - 0,2% GOCCE ORALI SOLUZIONE-LABORATORIO FARMACOLOGICO MILANE [Concomitant]
     Indication: PRODUCT USED FOR UNKNOWN INDICATION
     Route: 048

REACTIONS (14)
  - Dry skin [Unknown]
  - Dysphagia [Unknown]
  - Hyperpyrexia [Unknown]
  - Flatulence [Unknown]
  - Hyponatraemia [Recovering/Resolving]
  - Hypertransaminasaemia [Recovering/Resolving]
  - Hypocalcaemia [Unknown]
  - Decubitus ulcer [Unknown]
  - Decreased appetite [Recovering/Resolving]
  - Asthenia [Recovering/Resolving]
  - Diarrhoea [Recovering/Resolving]
  - Hypoalbuminaemia [Recovering/Resolving]
  - Muscle atrophy [Unknown]
  - Hypokalaemia [Unknown]

NARRATIVE: CASE EVENT DATE: 20160914
